FAERS Safety Report 9165686 (Version 1)
Quarter: 2013Q1

REPORT INFORMATION
  Report Type: Spontaneous
  Country: FR (occurrence: FR)
  Receive Date: 20130315
  Receipt Date: 20130315
  Transmission Date: 20140127
  Serious: Yes (Death)
  Sender: FDA-Public Use
  Company Number: FR-ROCHE-1200908

PATIENT
  Sex: Male

DRUGS (2)
  1. TENECTEPLASE [Suspect]
     Indication: PULMONARY EMBOLISM
     Route: 042
     Dates: start: 2012, end: 2012
  2. ADRENALINE [Concomitant]

REACTIONS (4)
  - Intraventricular haemorrhage [Fatal]
  - Coagulopathy [Fatal]
  - Multi-organ failure [Fatal]
  - Cardiogenic shock [Fatal]
